FAERS Safety Report 10936283 (Version 1)
Quarter: 2015Q1

REPORT INFORMATION
  Report Type: Spontaneous
  Country: US (occurrence: None)
  Receive Date: 20150320
  Receipt Date: 20150320
  Transmission Date: 20150721
  Serious: Yes (Other)
  Sender: FDA-Public Use
  Company Number: None

PATIENT
  Age: 55 Year
  Sex: Female
  Weight: 53.52 kg

DRUGS (1)
  1. BELSOMRA [Suspect]
     Active Substance: SUVOREXANT
     Indication: INSOMNIA
     Route: 048
     Dates: start: 20150317, end: 20150317

REACTIONS (13)
  - Hallucination [None]
  - Night sweats [None]
  - Abdominal discomfort [None]
  - Diarrhoea [None]
  - Hypoaesthesia [None]
  - Agitation [None]
  - Depression [None]
  - Confusional state [None]
  - Decreased appetite [None]
  - Bruxism [None]
  - Disturbance in attention [None]
  - Mental impairment [None]
  - Insomnia [None]

NARRATIVE: CASE EVENT DATE: 20150317
